FAERS Safety Report 7938250-X (Version None)
Quarter: 2011Q4

REPORT INFORMATION
  Report Type: 
  Country: None (occurrence: None)
  Receive Date: 20111123
  Receipt Date: 20111116
  Transmission Date: 20120403
  Serious: Yes (Death, Disabling)
  Sender: FDA-Public Use
  Company Number: CHPA2011RU016376

PATIENT
  Sex: Male

DRUGS (1)
  1. THERAFLU EXTRA STRENGTH COLD + FLU [Suspect]
     Indication: INFLUENZA
     Dosage: UNK, UNK
     Route: 048
     Dates: start: 20111111

REACTIONS (1)
  - MULTI-ORGAN FAILURE [None]
